FAERS Safety Report 5788273-4 (Version None)
Quarter: 2008Q2

REPORT INFORMATION
  Report Type: 
  Country: None (occurrence: None)
  Receive Date: 20080625
  Receipt Date: 20080613
  Transmission Date: 20081010
  Serious: Yes (Other)
  Sender: FDA-Public Use
  Company Number: US-PFIZER INC-2008029797

PATIENT
  Sex: Female
  Weight: 81.6 kg

DRUGS (11)
  1. LYRICA [Suspect]
     Indication: FIBROMYALGIA
  2. PREVACID [Concomitant]
  3. TRICOR [Concomitant]
  4. LIPITOR [Concomitant]
  5. DEPAKOTE [Concomitant]
  6. ELAVIL [Concomitant]
  7. SEROQUEL [Concomitant]
  8. ZOLOFT [Concomitant]
  9. ATIVAN [Concomitant]
  10. MIRALAX [Concomitant]
  11. IBUROFEN [Concomitant]

REACTIONS (9)
  - CONNECTIVE TISSUE DISORDER [None]
  - DRUG ERUPTION [None]
  - GRANULOMA ANNULARE [None]
  - RASH [None]
  - RASH PRURITIC [None]
  - ROSACEA [None]
  - SOMNOLENCE [None]
  - URINARY INCONTINENCE [None]
  - WEIGHT INCREASED [None]
